FAERS Safety Report 20310764 (Version 3)
Quarter: 2022Q3

REPORT INFORMATION
  Report Type: Spontaneous
  Country: US (occurrence: US)
  Receive Date: 20220107
  Receipt Date: 20220908
  Transmission Date: 20221026
  Serious: No
  Sender: FDA-Public Use
  Company Number: US-BRISTOL-MYERS SQUIBB COMPANY-BMS-2022-002456

PATIENT
  Age: 51 Year
  Sex: Male

DRUGS (1)
  1. ORENCIA [Suspect]
     Active Substance: ABATACEPT
     Indication: Rheumatoid arthritis
     Dosage: 125 MILLIGRAM, QWK?BATCH NUMBER: ACA7396, EXPIRE DATE: 30-SEP-2023?BATCH NUMBER : ACC1039, EXPIRY DA
     Route: 058
     Dates: start: 20210302

REACTIONS (4)
  - Fibromyalgia [Unknown]
  - Rheumatoid arthritis [Unknown]
  - Joint swelling [Unknown]
  - Arthralgia [Unknown]
